FAERS Safety Report 7433938-1 (Version None)
Quarter: 2011Q2

REPORT INFORMATION
  Report Type: 
  Country: None (occurrence: None)
  Receive Date: 20110420
  Receipt Date: 20110420
  Transmission Date: 20111010
  Serious: No
  Sender: FDA-Public Use
  Company Number: None

PATIENT
  Sex: Female

DRUGS (1)
  1. FORTEO [Suspect]
     Indication: ILL-DEFINED DISORDER
     Dosage: 600 MCG/2.4ML SC
     Route: 058

REACTIONS (1)
  - INSOMNIA [None]
